FAERS Safety Report 14773015 (Version 2)
Quarter: 2018Q2

REPORT INFORMATION
  Report Type: Report from Study
  Country: FR (occurrence: FR)
  Receive Date: 20180418
  Receipt Date: 20180504
  Transmission Date: 20180711
  Serious: Yes (Hospitalization)
  Sender: FDA-Public Use
  Company Number: FR-ROCHE-2105059

PATIENT
  Age: 72 Year
  Sex: Female

DRUGS (8)
  1. ATEZOLIZUMAB. [Suspect]
     Active Substance: ATEZOLIZUMAB
     Indication: OVARIAN CANCER
     Dosage: INDUCTION TREATMENT ON DAY 1 AND DAY 15 FOR 6 CYCLES?DATE OF MOST RECENT DOSE PRIOR TO EVENT ON 07/M
     Route: 042
     Dates: start: 20161019
  2. LERCAN [Concomitant]
     Active Substance: LERCANIDIPINE
  3. COAPROVEL [Concomitant]
     Active Substance: HYDROCHLOROTHIAZIDE\IRBESARTAN
  4. CARBOPLATIN. [Suspect]
     Active Substance: CARBOPLATIN
     Indication: OVARIAN CANCER
     Dosage: AREA UNDER THE CONCENTRATION CURVE (AUC) 5 ON DAY 01?DATE OF MOST RECENT DOSE PRIOR TO EVENT ONSET O
     Route: 042
     Dates: start: 20161019
  5. BEVACIZUMAB. [Suspect]
     Active Substance: BEVACIZUMAB
     Dosage: MAINTAINANCE TREATMENT ON DAY 1
     Route: 042
     Dates: start: 20161019
  6. ATEZOLIZUMAB. [Suspect]
     Active Substance: ATEZOLIZUMAB
     Dosage: MAINTAINANCE TREATMENT ON DAY 1
     Route: 042
     Dates: start: 20161019
  7. BEVACIZUMAB. [Suspect]
     Active Substance: BEVACIZUMAB
     Indication: OVARIAN CANCER
     Dosage: INDUCTION TREATMENT ON DAY 1 AND DAY 15?DATE OF MOST RECENT DOSE PRIOR TO EVENT ONSET ON 07/MAR/2018
     Route: 042
     Dates: start: 20161019
  8. CAELYX [Suspect]
     Active Substance: DOXORUBICIN HYDROCHLORIDE
     Indication: OVARIAN CANCER
     Dosage: ON DAY 1?DATE OF MOST RECENT DOSE PRIOR TO EVENT ONSET ON 08/MAR/2017
     Route: 042
     Dates: start: 20161019

REACTIONS (1)
  - Proteinuria [Not Recovered/Not Resolved]

NARRATIVE: CASE EVENT DATE: 20180328
